FAERS Safety Report 17937975 (Version 3)
Quarter: 2020Q3

REPORT INFORMATION
  Report Type: Spontaneous
  Country: CA (occurrence: CA)
  Receive Date: 20200624
  Receipt Date: 20200720
  Transmission Date: 20201103
  Serious: Yes (Other)
  Sender: FDA-Public Use
  Company Number: CA-PFIZER INC-2019431898

PATIENT
  Age: 35 Year
  Sex: Female

DRUGS (4)
  1. XELJANZ [Suspect]
     Active Substance: TOFACITINIB CITRATE
     Dosage: 5 MG, 2X/DAY
     Route: 048
     Dates: start: 2019, end: 20200617
  2. XELJANZ [Suspect]
     Active Substance: TOFACITINIB CITRATE
     Dosage: 10 MG, 2X/DAY (5 MG, 2 CO, BID)
     Route: 048
     Dates: start: 20200618, end: 2020
  3. XELJANZ [Suspect]
     Active Substance: TOFACITINIB CITRATE
     Indication: COLITIS ULCERATIVE
     Dosage: 10 MG, 2X/DAY
     Route: 048
     Dates: start: 20190824, end: 2019
  4. CORTIMENT [BUDESONIDE] [Concomitant]
     Active Substance: BUDESONIDE
     Dosage: UNK
     Route: 065

REACTIONS (8)
  - Malaise [Unknown]
  - Therapeutic product effect incomplete [Not Recovered/Not Resolved]
  - Treatment failure [Unknown]
  - Spondylitis [Recovering/Resolving]
  - Insomnia [Unknown]
  - Bartholinitis [Unknown]
  - Colitis ulcerative [Unknown]
  - Pain [Unknown]
